FAERS Safety Report 6572755-1 (Version None)
Quarter: 2010Q1

REPORT INFORMATION
  Report Type: 
  Country: None (occurrence: None)
  Receive Date: 20100205
  Receipt Date: 20100125
  Transmission Date: 20100710
  Serious: Yes (Death)
  Sender: FDA-Public Use
  Company Number: US-JNJFOC-20100201734

PATIENT
  Age: 4 Month
  Sex: Male
  Weight: 7.26 kg

DRUGS (4)
  1. CHILDREN'S TYLENOL PLUS COLD [Suspect]
     Indication: NASOPHARYNGITIS
     Dosage: X 2 DAYS
     Route: 048
  2. CARBAXEFED DM [Suspect]
     Indication: NASOPHARYNGITIS
     Dosage: X 2 DAYS
     Route: 048
  3. CHLORPHENIRAMINE MALEATE [Suspect]
     Indication: DRUG USE FOR UNKNOWN INDICATION
  4. PHENOBARBITOL NOS [Suspect]

REACTIONS (2)
  - ANOXIC ENCEPHALOPATHY [None]
  - DRUG TOXICITY [None]
